FAERS Safety Report 6751364-5 (Version None)
Quarter: 2010Q2

REPORT INFORMATION
  Report Type: 
  Country: None (occurrence: None)
  Receive Date: 20100528
  Receipt Date: 20100518
  Transmission Date: 20101027
  Serious: Yes (Death)
  Sender: FDA-Public Use
  Company Number: 1000011867

PATIENT
  Age: 62 Year
  Sex: Female
  Weight: 63 kg

DRUGS (1)
  1. ESCITALOPRAM [Suspect]
     Indication: MAJOR DEPRESSION
     Dosage: 15 MG (15 MG, 1 IN 1 D),ORAL
     Route: 048

REACTIONS (2)
  - ASPHYXIA [None]
  - COMPLETED SUICIDE [None]
